FAERS Safety Report 15433091 (Version 1)
Quarter: 2018Q3

REPORT INFORMATION
  Report Type: Spontaneous
  Country: US (occurrence: US)
  Receive Date: 20180927
  Receipt Date: 20180927
  Transmission Date: 20181010
  Serious: No
  Sender: FDA-Public Use
  Company Number: US-NOVEN PHARMACEUTICALS, INC.-US2018000083

PATIENT

DRUGS (1)
  1. COMBIPATCH [Suspect]
     Active Substance: ESTRADIOL\NORETHINDRONE ACETATE
     Indication: HORMONE REPLACEMENT THERAPY
     Dosage: 50/140 MG
     Route: 062
     Dates: end: 2018

REACTIONS (5)
  - Product quality issue [Recovered/Resolved]
  - Product storage error [Recovered/Resolved]
  - Product adhesion issue [Recovered/Resolved]
  - Therapy cessation [Not Recovered/Not Resolved]
  - No adverse event [Unknown]
